FAERS Safety Report 16091624 (Version 2)
Quarter: 2019Q1

REPORT INFORMATION
  Report Type: Spontaneous
  Country: PL (occurrence: PL)
  Receive Date: 20190319
  Receipt Date: 20190328
  Transmission Date: 20190418
  Serious: Yes (Hospitalization)
  Sender: FDA-Public Use
  Company Number: PL-B.I. PHARMACEUTICALS,INC./RIDGEFIELD-2019-BI-011600

PATIENT
  Sex: Male
  Weight: 88 kg

DRUGS (5)
  1. AVEDOL [Concomitant]
     Active Substance: CARVEDILOL
     Indication: HYPERTENSION
     Route: 048
     Dates: start: 2017
  2. TULIP [Concomitant]
     Indication: HYPERCHOLESTEROLAEMIA
     Dosage: FORM STRENGTH: 40
     Route: 048
     Dates: start: 2017
  3. DIAPREL [Concomitant]
     Active Substance: GLICLAZIDE
     Indication: TYPE 2 DIABETES MELLITUS
     Route: 048
     Dates: start: 2017
  4. PRADAXA [Suspect]
     Active Substance: DABIGATRAN ETEXILATE MESYLATE
     Indication: ATRIAL FIBRILLATION
     Dosage: UNIT DOSE: 110; DAILY DOSE: 220
     Route: 065
     Dates: end: 20190101
  5. FUROSEMID [Concomitant]
     Active Substance: FUROSEMIDE
     Indication: CIRCULATORY COLLAPSE
     Route: 048
     Dates: start: 2017

REACTIONS (1)
  - Skin ulcer [Recovered/Resolved]
